FAERS Safety Report 12337880 (Version 2)
Quarter: 2016Q2

REPORT INFORMATION
  Report Type: Report from Study
  Country: DE (occurrence: DE)
  Receive Date: 20160505
  Receipt Date: 20160607
  Transmission Date: 20160815
  Serious: Yes (Death, Other)
  Sender: FDA-Public Use
  Company Number: DE-ABBVIE-16P-062-1618862-00

PATIENT
  Age: 90 Year
  Sex: Male

DRUGS (1)
  1. DUODOPA [Suspect]
     Active Substance: CARBIDOPA\LEVODOPA
     Indication: PARKINSON^S DISEASE
     Dosage: MD 3.0ML / CRD 3.8ML/H / CRN 3.8ML / ED 1ML
     Route: 050
     Dates: start: 20160422

REACTIONS (2)
  - General physical health deterioration [Fatal]
  - Aspiration [Unknown]

NARRATIVE: CASE EVENT DATE: 20160426
